FAERS Safety Report 10735453 (Version 4)
Quarter: 2015Q1

REPORT INFORMATION
  Report Type: Report from Study
  Country: US (occurrence: US)
  Receive Date: 20150126
  Receipt Date: 20150318
  Transmission Date: 20150721
  Serious: Yes (Other)
  Sender: FDA-Public Use
  Company Number: US-009507513-1501USA008685

PATIENT
  Age: 71 Year
  Sex: Male

DRUGS (8)
  1. BACTRIM DS [Concomitant]
     Active Substance: SULFAMETHOXAZOLE\TRIMETHOPRIM
     Indication: INFECTION PROPHYLAXIS
     Dosage: 160 MG, 1 IN 3 WEEK
     Route: 048
     Dates: start: 20140811, end: 20141002
  2. ONDANSETRON HYDROCHLORIDE. [Concomitant]
     Active Substance: ONDANSETRON HYDROCHLORIDE
     Indication: NAUSEA
     Dosage: 4 MG, QD
     Route: 048
     Dates: start: 20140811
  3. DEXAMETHASONE. [Concomitant]
     Active Substance: DEXAMETHASONE
     Indication: PROPHYLAXIS
     Dosage: 0.1 %, TID,2 DAYS PRIOR TO INFUSION, DAY OF INFUSION AND 4 DAYS POST INFU TOTAL OF 7 DAYS
     Route: 047
     Dates: start: 20140818, end: 20150120
  4. ABT-414 [Suspect]
     Active Substance: INVESTIGATIONAL PRODUCT
     Indication: GLIOBLASTOMA MULTIFORME
     Dosage: UNK
     Route: 042
     Dates: start: 20140820
  5. TEMODAR [Suspect]
     Active Substance: TEMOZOLOMIDE
     Indication: GLIOBLASTOMA MULTIFORME
     Dosage: 75 MG/M2, QD
     Route: 048
     Dates: start: 20140820
  6. LEVETIRACETAM. [Concomitant]
     Active Substance: LEVETIRACETAM
     Indication: SEIZURE
     Dosage: 500 MG, TID
     Route: 048
     Dates: start: 20140811
  7. TEMODAR [Concomitant]
     Active Substance: TEMOZOLOMIDE
     Indication: CHEMOTHERAPY
     Dosage: 120 MG, QD, FOR 43 DAYS DURING RADIATION THERAPY
     Route: 048
     Dates: start: 20140811
  8. NICOTINE. [Concomitant]
     Active Substance: NICOTINE
     Indication: EX-TOBACCO USER
     Dosage: 21 MG, QD
     Route: 062
     Dates: start: 20140815

REACTIONS (3)
  - Thrombocytopenia [Recovered/Resolved]
  - Platelet count decreased [Recovered/Resolved]
  - Platelet count decreased [Not Recovered/Not Resolved]

NARRATIVE: CASE EVENT DATE: 20140924
